FAERS Safety Report 16685794 (Version 1)
Quarter: 2019Q3

REPORT INFORMATION
  Report Type: Spontaneous
  Country: US (occurrence: US)
  Receive Date: 20190809
  Receipt Date: 20190809
  Transmission Date: 20191004
  Serious: No
  Sender: FDA-Public Use
  Company Number: US-SA-2019SA215573

PATIENT
  Age: 40 Year
  Sex: Female

DRUGS (1)
  1. DUPIXENT [Suspect]
     Active Substance: DUPILUMAB
     Dosage: 600 MG, 1X
     Dates: start: 20190718, end: 20190718

REACTIONS (5)
  - Injection site erythema [Not Recovered/Not Resolved]
  - Injection site urticaria [Not Recovered/Not Resolved]
  - Injection site mass [Not Recovered/Not Resolved]
  - Condition aggravated [Not Recovered/Not Resolved]
  - Injection site pruritus [Not Recovered/Not Resolved]

NARRATIVE: CASE EVENT DATE: 2019
